FAERS Safety Report 20593746 (Version 1)
Quarter: 2022Q1

REPORT INFORMATION
  Report Type: Spontaneous
  Country: US (occurrence: US)
  Receive Date: 20220315
  Receipt Date: 20220315
  Transmission Date: 20220423
  Serious: Yes (Hospitalization)
  Sender: FDA-Public Use
  Company Number: US-AVEO ONCOLOGY-2022-AVEO-US000076

PATIENT

DRUGS (12)
  1. FOTIVDA [Suspect]
     Active Substance: TIVOZANIB HYDROCHLORIDE
     Indication: Renal cell carcinoma
     Dosage: 0.89 MG, DAILY
     Route: 048
     Dates: start: 20220223, end: 20220306
  2. ACETAMINOPHEN [Concomitant]
     Active Substance: ACETAMINOPHEN
     Dosage: 325 MG
  3. ELIQUIS [Concomitant]
     Active Substance: APIXABAN
     Dosage: 2.5 MG
  4. CABOMETYX [Concomitant]
     Active Substance: CABOZANTINIB S-MALATE
     Dosage: 20 MG
  5. VITAMIN D3 [Concomitant]
     Active Substance: CHOLECALCIFEROL
     Dosage: 25 UG
  6. VOLTAREN [Concomitant]
     Active Substance: DICLOFENAC SODIUM
     Dosage: GEL 1 %
  7. PLAQUENIL [Concomitant]
     Active Substance: HYDROXYCHLOROQUINE SULFATE
     Dosage: 200 MG
  8. MELATONIN [Concomitant]
     Active Substance: MELATONIN
     Dosage: 5 MG
  9. PREDNISONE [Concomitant]
     Active Substance: PREDNISONE
     Dosage: 5 MG
  10. TRAMADOL [Concomitant]
     Active Substance: TRAMADOL
     Dosage: 50 MG
  11. Multiple vitamin and Mineral [Concomitant]
  12. TOPIRAMATE [Concomitant]
     Active Substance: TOPIRAMATE
     Dosage: 50 MG, BID

REACTIONS (2)
  - Seizure [Unknown]
  - Therapy interrupted [Unknown]

NARRATIVE: CASE EVENT DATE: 20220306
